FAERS Safety Report 26057573 (Version 1)
Quarter: 2025Q4

REPORT INFORMATION
  Report Type: Spontaneous
  Country: US (occurrence: None)
  Receive Date: 20251118
  Receipt Date: 20251118
  Transmission Date: 20260117
  Serious: No
  Sender: UCB
  Company Number: US-UCBSA-2025028188

PATIENT
  Age: 35 Year

DRUGS (6)
  1. LEVETIRACETAM [Suspect]
     Active Substance: LEVETIRACETAM
     Indication: MELAS syndrome
     Dosage: UNK
  2. LEVETIRACETAM [Suspect]
     Active Substance: LEVETIRACETAM
     Indication: Off label use
  3. LACOSAMIDE [Suspect]
     Active Substance: LACOSAMIDE
     Indication: MELAS syndrome
     Dosage: UNK
  4. LACOSAMIDE [Suspect]
     Active Substance: LACOSAMIDE
     Indication: Off label use
  5. CLONAZEPAM [Concomitant]
     Active Substance: CLONAZEPAM
     Indication: MELAS syndrome
     Dosage: UNK
  6. ARGININE [Concomitant]
     Active Substance: ARGININE
     Indication: MELAS syndrome
     Dosage: UNK

REACTIONS (1)
  - No adverse event [Unknown]
